FAERS Safety Report 7939832-1 (Version None)
Quarter: 2011Q4

REPORT INFORMATION
  Report Type: 
  Country: None (occurrence: None)
  Receive Date: 20111125
  Receipt Date: 20111124
  Transmission Date: 20120403
  Serious: Yes (Death, Hospitalization, Other)
  Sender: FDA-Public Use
  Company Number: PHHY2011AT097647

PATIENT
  Age: 57 Year
  Sex: Male
  Weight: 75 kg

DRUGS (6)
  1. METOPROLOL TARTRATE [Concomitant]
     Dosage: 47.5 MG, 1 ONCE DAILY
  2. CLOZAPINE [Suspect]
     Indication: MENTAL RETARDATION
     Dosage: 100 MG, 2 DOSAGE FORM 3 TIMES A DAY
     Dates: start: 20110801
  3. NOVALGIN [Suspect]
     Indication: PYREXIA
  4. MUCOBENE [Concomitant]
     Dosage: 600 MG, QD
     Dates: start: 20111001
  5. ENALAPRIL MALEATE [Concomitant]
     Dosage: 5 MG, 1 DOSAGE ONCE DAILY
  6. UNASYN [Concomitant]
     Dosage: 1 DF, 2 PER DAY
     Dates: start: 20111005

REACTIONS (7)
  - SEPSIS [None]
  - GENERAL PHYSICAL HEALTH DETERIORATION [None]
  - NEUTROPENIA [None]
  - PYREXIA [None]
  - AGRANULOCYTOSIS [None]
  - MULTI-ORGAN FAILURE [None]
  - WHITE BLOOD CELL COUNT DECREASED [None]
